FAERS Safety Report 4578077-2 (Version None)
Quarter: 2005Q1

REPORT INFORMATION
  Report Type: 
  Country: None (occurrence: None)
  Receive Date: 20050202
  Receipt Date: 20050202
  Transmission Date: 20050727
  Serious: Yes (Other)
  Sender: FDA-Public Use
  Company Number: None

PATIENT
  Age: 40 Year
  Sex: Female
  Weight: 56.246 kg

DRUGS (7)
  1. MORPHINE SULFATE [Suspect]
     Indication: PAIN
     Dosage: 1 TABLET 3X/DAY
     Dates: start: 20040901, end: 20050101
  2. METOPROLOL [Concomitant]
  3. CAPOTEN [Concomitant]
  4. NEURONTIN [Concomitant]
  5. OXYCODONE AND ACETAMINOPHEN [Concomitant]
  6. FIORICET [Concomitant]
  7. PROTONIX [Concomitant]

REACTIONS (6)
  - ABDOMINAL PAIN UPPER [None]
  - DECREASED APPETITE [None]
  - INADEQUATE ANALGESIA [None]
  - NAUSEA [None]
  - VOMITING [None]
  - WEIGHT DECREASED [None]
